FAERS Safety Report 7878657-2 (Version None)
Quarter: 2011Q4

REPORT INFORMATION
  Report Type: 
  Country: None (occurrence: None)
  Receive Date: 20111018
  Receipt Date: 20101116
  Transmission Date: 20120403
  Serious: Yes (Hospitalization)
  Sender: FDA-Public Use
  Company Number: 2010P1002653

PATIENT
  Age: 86 Year
  Sex: Male
  Weight: 60.782 kg

DRUGS (10)
  1. PLAVIX [Concomitant]
  2. FENTANYL [Suspect]
     Indication: BACK PAIN
     Dosage: 1 PATCH;Q3D;TDER
     Route: 062
  3. GABAPENTIN [Concomitant]
  4. HALOPERIDOL [Concomitant]
  5. MEGESTROL ACETATE [Concomitant]
  6. NEXIUM [Concomitant]
  7. HYDROCODONE BITARTRATE [Concomitant]
  8. SIMVASTATIN [Concomitant]
  9. ARICEPT [Concomitant]
  10. MIRTAZAPINE [Concomitant]

REACTIONS (1)
  - DYSPNOEA [None]
